FAERS Safety Report 11557153 (Version 1)
Quarter: 2015Q3

REPORT INFORMATION
  Report Type: Spontaneous
  Country: US (occurrence: US)
  Receive Date: 20150916
  Receipt Date: 20150916
  Transmission Date: 20151125
  Serious: No
  Sender: FDA-Public Use
  Company Number: US-ELI_LILLY_AND_COMPANY-US200806006086

PATIENT
  Age: 56 Year
  Sex: Female

DRUGS (12)
  1. LASIX [Concomitant]
     Active Substance: FUROSEMIDE
  2. NOVOLOG [Concomitant]
     Active Substance: INSULIN ASPART
  3. VITAMIN D2 [Concomitant]
     Active Substance: ERGOCALCIFEROL
  4. BYETTA [Concomitant]
     Active Substance: EXENATIDE
  5. TOPROL XL [Concomitant]
     Active Substance: METOPROLOL SUCCINATE
  6. ISORDIL [Concomitant]
     Active Substance: ISOSORBIDE DINITRATE
  7. NIASPAN [Concomitant]
     Active Substance: NIACIN
  8. LEVEMIR [Concomitant]
     Active Substance: INSULIN DETEMIR
  9. ALTACE [Concomitant]
     Active Substance: RAMIPRIL
  10. FORTEO [Suspect]
     Active Substance: TERIPARATIDE
     Indication: OSTEOPOROSIS
     Dosage: 20 UG, DAILY (1/D)
     Route: 058
     Dates: start: 20080609, end: 20080623
  11. ZETIA [Concomitant]
     Active Substance: EZETIMIBE
  12. NORVASC [Concomitant]
     Active Substance: AMLODIPINE BESYLATE

REACTIONS (6)
  - Chest pain [Recovered/Resolved]
  - Oedema peripheral [Recovered/Resolved]
  - Sleep disorder [Recovered/Resolved]
  - Arthralgia [Unknown]
  - Heart rate increased [Recovered/Resolved]
  - Cardiac discomfort [Recovered/Resolved]

NARRATIVE: CASE EVENT DATE: 200806
